FAERS Safety Report 10169223 (Version 1)
Quarter: 2014Q2

REPORT INFORMATION
  Report Type: Spontaneous
  Country: US (occurrence: None)
  Receive Date: 20140512
  Receipt Date: 20140512
  Transmission Date: 20141212
  Serious: Yes (Hospitalization)
  Sender: FDA-Public Use
  Company Number: None

PATIENT
  Age: 87 Year
  Sex: Male
  Weight: 93 kg

DRUGS (2)
  1. CLOPIDOGREL [Suspect]
     Indication: STENT PLACEMENT
     Route: 048
     Dates: start: 20130204, end: 20140404
  2. ASPIRIN [Suspect]
     Indication: STENT PLACEMENT

REACTIONS (3)
  - Haematuria [None]
  - Hypotension [None]
  - Haemorrhage [None]
